FAERS Safety Report 24978906 (Version 1)
Quarter: 2025Q1

REPORT INFORMATION
  Report Type: Spontaneous
  Country: CN (occurrence: CN)
  Receive Date: 20250218
  Receipt Date: 20250218
  Transmission Date: 20250409
  Serious: Yes (Hospitalization, Other)
  Sender: ROCHE
  Company Number: CN-ROCHE-10000203480

PATIENT
  Age: 64 Year
  Sex: Female
  Weight: 65 kg

DRUGS (19)
  1. ATEZOLIZUMAB [Suspect]
     Active Substance: ATEZOLIZUMAB
     Indication: Pancreatic carcinoma
     Dosage: THE LAST DOSE OF ATEZOLIZUMAB WAS GIVEN ON 09-DEC-2024
     Route: 065
     Dates: start: 20241116, end: 20241207
  2. LEVOFLOXACIN [Suspect]
     Active Substance: LEVOFLOXACIN
     Indication: Infection
     Route: 040
     Dates: start: 20250103, end: 20250108
  3. PACLITAXEL [Concomitant]
     Active Substance: PACLITAXEL
  4. PACLITAXEL [Concomitant]
     Active Substance: PACLITAXEL
     Dates: start: 20241228
  5. TEGAFUR [Concomitant]
     Active Substance: TEGAFUR
  6. GIMERACIL [Concomitant]
     Active Substance: GIMERACIL
  7. OTERACIL POTASSIUM [Concomitant]
     Active Substance: OTERACIL POTASSIUM
  8. LORATADINE [Concomitant]
     Active Substance: LORATADINE
  9. UNSPECIFIED INGREDIENT [Concomitant]
     Active Substance: UNSPECIFIED INGREDIENT
     Route: 040
  10. METHYLPREDNISOLONE [Concomitant]
     Active Substance: METHYLPREDNISOLONE
     Route: 040
  11. METHYLPREDNISOLONE [Concomitant]
     Active Substance: METHYLPREDNISOLONE
  12. METHYLPREDNISOLONE [Concomitant]
     Active Substance: METHYLPREDNISOLONE
     Route: 040
  13. METHYLPREDNISOLONE SODIUM SUCCINATE [Concomitant]
     Active Substance: METHYLPREDNISOLONE SODIUM SUCCINATE
  14. HUMAN IMMUNOGLOBULIN G [Concomitant]
     Active Substance: HUMAN IMMUNOGLOBULIN G
  15. VITAMIN C [Concomitant]
     Active Substance: ASCORBIC ACID
  16. CALCIUM GLUCONATE [Concomitant]
     Active Substance: CALCIUM GLUCONATE
  17. PANTOPRAZOLE SODIUM [Concomitant]
     Active Substance: PANTOPRAZOLE SODIUM
  18. POTASSIUM CHLORIDE [Concomitant]
     Active Substance: POTASSIUM CHLORIDE
  19. CALCIUM CARBONATE [Concomitant]
     Active Substance: CALCIUM CARBONATE

REACTIONS (2)
  - Epidermolysis bullosa [Not Recovered/Not Resolved]
  - Intentional product use issue [Unknown]

NARRATIVE: CASE EVENT DATE: 20250120
